FAERS Safety Report 6552474-8 (Version None)
Quarter: 2010Q1

REPORT INFORMATION
  Report Type: 
  Country: None (occurrence: None)
  Receive Date: 20100126
  Receipt Date: 20100119
  Transmission Date: 20100710
  Serious: Yes (Hospitalization, Other)
  Sender: FDA-Public Use
  Company Number: PHHO2008DE07135

PATIENT
  Sex: Male
  Weight: 89 kg

DRUGS (12)
  1. NEORAL [Suspect]
     Indication: RENAL TRANSPLANT
     Dosage: UNK
     Route: 048
     Dates: start: 20080514
  2. NEORAL [Suspect]
     Dosage: 150 MG, BID
     Route: 048
     Dates: start: 20080624, end: 20080717
  3. NEORAL [Suspect]
     Dosage: 200 MG DAILY
     Route: 048
     Dates: start: 20080718, end: 20080718
  4. NEORAL [Suspect]
     Dosage: 100 MG, BID
     Route: 048
     Dates: start: 20080719, end: 20080729
  5. NO TREATMENT RECEIVED NOMED [Suspect]
     Indication: RENAL TRANSPLANT
  6. MYFORTIC [Concomitant]
     Indication: RENAL TRANSPLANT
     Dosage: 720 UNK, UNK
     Route: 048
     Dates: start: 20080514
  7. DECORTIN [Concomitant]
     Indication: IMMUNOSUPPRESSION
     Dosage: 25 MG, UNK
     Route: 048
     Dates: start: 20080514
  8. METOPROLOL [Concomitant]
  9. RAMIPRIL [Concomitant]
  10. COTRIM [Concomitant]
  11. OMEP [Concomitant]
  12. AMPHOTERICIN B [Concomitant]

REACTIONS (8)
  - ACCIDENTAL OVERDOSE [None]
  - BLOOD CREATININE INCREASED [None]
  - CALCULUS URINARY [None]
  - HYDRONEPHROSIS [None]
  - LYMPHOCELE [None]
  - RENAL FAILURE [None]
  - SURGERY [None]
  - URINARY TRACT OBSTRUCTION [None]
